FAERS Safety Report 15567107 (Version 2)
Quarter: 2018Q4

REPORT INFORMATION
  Report Type: Spontaneous
  Country: US (occurrence: US)
  Receive Date: 20181030
  Receipt Date: 20181217
  Transmission Date: 20190205
  Serious: Yes (Hospitalization)
  Sender: FDA-Public Use
  Company Number: US-BAYER-2018-197398

PATIENT
  Age: 65 Year
  Sex: Male

DRUGS (7)
  1. XOFIGO [Interacting]
     Active Substance: RADIUM RA-223 DICHLORIDE
     Indication: HORMONE-REFRACTORY PROSTATE CANCER
     Dosage: 133 MICROCURIES
     Route: 042
     Dates: start: 20181101, end: 20181101
  2. GLIMEPIRIDE. [Interacting]
     Active Substance: GLIMEPIRIDE
     Indication: DIABETES MELLITUS
     Dosage: UNK
     Dates: end: 20181015
  3. METFORMIN [Interacting]
     Active Substance: METFORMIN HYDROCHLORIDE
     Indication: DIABETES MELLITUS
     Dosage: 850 MG, QD
  4. XOFIGO [Interacting]
     Active Substance: RADIUM RA-223 DICHLORIDE
     Indication: METASTASES TO BONE
     Dosage: 133 MICROCURIES
     Route: 042
     Dates: start: 20180802, end: 20180802
  5. XOFIGO [Interacting]
     Active Substance: RADIUM RA-223 DICHLORIDE
     Indication: HORMONE-REFRACTORY PROSTATE CANCER
     Dosage: 136 MICROCURIES
     Route: 042
     Dates: start: 20180921, end: 20180921
  6. XOFIGO [Suspect]
     Active Substance: RADIUM RA-223 DICHLORIDE
     Indication: HORMONE-REFRACTORY PROSTATE CANCER
     Dosage: 122 MICROCURIES
     Route: 042
     Dates: start: 20180628, end: 20180628
  7. JANUVIA [Interacting]
     Active Substance: SITAGLIPTIN PHOSPHATE
     Indication: DIABETES MELLITUS
     Dosage: 100 MG, QD

REACTIONS (5)
  - Hyperhidrosis [None]
  - Fatigue [None]
  - Hypoglycaemia [None]
  - Drug interaction [None]
  - Dizziness [None]

NARRATIVE: CASE EVENT DATE: 20180802
